FAERS Safety Report 23108086 (Version 2)
Quarter: 2024Q1

REPORT INFORMATION
  Report Type: Spontaneous
  Country: CA (occurrence: CA)
  Receive Date: 20231026
  Receipt Date: 20240329
  Transmission Date: 20240410
  Serious: Yes (Hospitalization, Other)
  Sender: FDA-Public Use
  Company Number: CA-TEVA-2023-CA-2937768

PATIENT
  Age: 30 Year
  Sex: Male

DRUGS (2)
  1. PROPRANOLOL [Suspect]
     Active Substance: PROPRANOLOL HYDROCHLORIDE
     Indication: Off label use
     Dosage: TIME INTERVAL: 0.33333333 DAYS: DOSAGE FORM:UNSPECIFIED
     Route: 048
  2. INSULIN NOS [Concomitant]
     Active Substance: INSULIN NOS
     Indication: Product used for unknown indication
     Route: 065

REACTIONS (5)
  - Pancreatitis [Recovered/Resolved]
  - Off label use [Unknown]
  - Pancreatitis acute [Unknown]
  - Product use in unapproved indication [Unknown]
  - Product use issue [Unknown]
